FAERS Safety Report 12277626 (Version 1)
Quarter: 2016Q2

REPORT INFORMATION
  Report Type: Spontaneous
  Country: US (occurrence: US)
  Receive Date: 20160418
  Receipt Date: 20160418
  Transmission Date: 20160815
  Serious: No
  Sender: FDA-Public Use
  Company Number: US-BAYER-2016-071251

PATIENT
  Age: 26 Year
  Sex: Female

DRUGS (3)
  1. ALEVE [Suspect]
     Active Substance: NAPROXEN SODIUM
  2. ADVIL [Concomitant]
     Active Substance: IBUPROFEN
  3. ROBITUSSIN D [Concomitant]

REACTIONS (2)
  - Drug ineffective [None]
  - Drug ineffective for unapproved indication [None]
